FAERS Safety Report 5570726-5 (Version None)
Quarter: 2007Q4

REPORT INFORMATION
  Report Type: 
  Country: None (occurrence: None)
  Receive Date: 20071221
  Receipt Date: 20071218
  Transmission Date: 20080405
  Serious: Yes (Hospitalization)
  Sender: FDA-Public Use
  Company Number: DK-WYE-H01811507

PATIENT
  Age: 70 Year
  Sex: Male

DRUGS (8)
  1. CORDARONE [Suspect]
     Indication: MYOCARDIAL ISCHAEMIA
     Dates: start: 20071001, end: 20071008
  2. SIMVASTATIN [Concomitant]
     Dosage: 40 MG (FREQUENCY UNSPECIFIED)
     Route: 048
     Dates: end: 20071015
  3. MAGNESIA [Concomitant]
     Indication: CONSTIPATION
     Dosage: 1 G (FREQUENCY UNSPECIFIED)
     Route: 048
     Dates: start: 20071003
  4. SELOZOK [Concomitant]
     Indication: CARDIAC DISORDER
     Dosage: 50 MG (FREQUENCY UNSPECIFIED)
     Route: 048
     Dates: end: 20071011
  5. AMLODIPINE [Concomitant]
     Indication: CARDIAC DISORDER
     Dosage: 10 MG (FREQUENCY UNSPECIFIED)
     Route: 048
  6. ISODUR [Concomitant]
     Indication: CARDIAC DISORDER
     Dosage: 30 MG (FREQUENCY UNSPECIFIED)
     Route: 048
     Dates: end: 20071015
  7. ACETYLSALICYLIC ACID SRT [Concomitant]
     Indication: CARDIAC DISORDER
     Dosage: 75 MG (FREQUENCY UNSPECIFIED)
     Route: 048
  8. WARFARIN SODIUM [Concomitant]
     Route: 048

REACTIONS (2)
  - ECZEMA [None]
  - PRURITUS [None]
